FAERS Safety Report 9202661 (Version 1)
Quarter: 2013Q2

REPORT INFORMATION
  Report Type: Spontaneous
  Country: FR (occurrence: FR)
  Receive Date: 20130401
  Receipt Date: 20130401
  Transmission Date: 20140414
  Serious: Yes (Other)
  Sender: FDA-Public Use
  Company Number: FR-ABBOTT-13P-056-1069064-00

PATIENT
  Age: 70 Year
  Sex: Male

DRUGS (2)
  1. HUMIRA [Suspect]
     Indication: ANKYLOSING SPONDYLITIS
     Dates: start: 2010
  2. IMETH [Concomitant]
     Indication: ANKYLOSING SPONDYLITIS
     Dates: start: 2010

REACTIONS (2)
  - Neutropenia [Unknown]
  - Inflammation [Unknown]
